FAERS Safety Report 5925965-8 (Version None)
Quarter: 2008Q4

REPORT INFORMATION
  Report Type: 
  Country: None (occurrence: None)
  Receive Date: 20081021
  Receipt Date: 20081009
  Transmission Date: 20090506
  Serious: Yes (Hospitalization)
  Sender: FDA-Public Use
  Company Number: NO-PFIZER INC-2008085666

PATIENT
  Sex: Female

DRUGS (3)
  1. PROVERA [Suspect]
     Indication: ENDOMETRIOSIS
     Dosage: DAILY DOSE:40MG-FREQ:DAILY
     Route: 048
     Dates: start: 19920101
  2. PROVERA [Suspect]
     Dosage: DAILY DOSE:10MG-FREQ:DAILY
     Route: 048
     Dates: end: 20080101
  3. PROVERA [Suspect]
     Dosage: DAILY DOSE:40MG-FREQ:DAILY
     Route: 048
     Dates: start: 20080101

REACTIONS (1)
  - TRANSIENT ISCHAEMIC ATTACK [None]
